FAERS Safety Report 16030392 (Version 1)
Quarter: 2019Q1

REPORT INFORMATION
  Report Type: Spontaneous
  Country: US (occurrence: US)
  Receive Date: 20190304
  Receipt Date: 20190304
  Transmission Date: 20190418
  Serious: Yes (Hospitalization, Other)
  Sender: FDA-Public Use
  Company Number: US-PFIZER INC-2019090688

PATIENT
  Age: 66 Year
  Sex: Female
  Weight: 72 kg

DRUGS (2)
  1. GABAPENTIN. [Suspect]
     Active Substance: GABAPENTIN
     Dosage: 200 MG, 1X/DAY [QHS ]
  2. GABAPENTIN. [Suspect]
     Active Substance: GABAPENTIN
     Dosage: 100 MG, AS NEEDED [TAKE 3-4 CAPSULES BY MOUTH AT BEDTIME AS NEEDED]
     Route: 048

REACTIONS (13)
  - Raynaud^s phenomenon [Unknown]
  - Diarrhoea [Recovered/Resolved]
  - Insomnia [Unknown]
  - Pain [Unknown]
  - Abdominal pain [Unknown]
  - Malaise [Unknown]
  - Cough [Unknown]
  - Peripheral ischaemia [Unknown]
  - Pyrexia [Unknown]
  - Facial pain [Unknown]
  - Pleural effusion [Unknown]
  - Rash [Unknown]
  - Dyspnoea [Recovered/Resolved]
